FAERS Safety Report 5720923-0 (Version None)
Quarter: 2008Q2

REPORT INFORMATION
  Report Type: 
  Country: None (occurrence: None)
  Receive Date: 20080423
  Receipt Date: 20071228
  Transmission Date: 20081010
  Serious: Yes (Hospitalization)
  Sender: FDA-Public Use
  Company Number: 253524

PATIENT
  Age: 79 Year
  Sex: Male

DRUGS (2)
  1. AVASTIN [Suspect]
     Indication: COLORECTAL CANCER
     Dosage: 440 MG, Q2W, INTRAVENOUS
     Route: 042
     Dates: start: 20071204
  2. OXALIPLATIN [Concomitant]

REACTIONS (1)
  - EMBOLISM [None]
